FAERS Safety Report 10717485 (Version 1)
Quarter: 2015Q1

REPORT INFORMATION
  Report Type: Report from Study
  Country: US (occurrence: US)
  Receive Date: 20150116
  Receipt Date: 20150116
  Transmission Date: 20150721
  Serious: Yes (Hospitalization)
  Sender: FDA-Public Use
  Company Number: US-MYLANLABS-2014M1013936

PATIENT

DRUGS (7)
  1. VINCRISTINE [Suspect]
     Active Substance: VINCRISTINE
     Dosage: 2 MG, DAY 1 AND DAY 8
     Route: 042
     Dates: start: 20141102
  2. RITUXIMAB [Suspect]
     Active Substance: RITUXIMAB
     Dosage: 375 MG/M2, ON DAY 2 AND DAY 8 (CYCLES 1 AND 3 ONLY)
     Route: 042
     Dates: start: 20141102
  3. CYCLOPHOSPHAMIDE. [Suspect]
     Active Substance: CYCLOPHOSPHAMIDE
     Dosage: 150 MG/M2, OVER 3 HOURS TWICE A DAY ON DAYS 1-3
     Route: 042
     Dates: start: 20141102
  4. DEXAMETHASONE. [Suspect]
     Active Substance: DEXAMETHASONE
     Dosage: 20 MG, FOR 4 DAYS ON DAYS 1-4 AND DAYS 11-14
     Route: 042
  5. MESNA. [Suspect]
     Active Substance: MESNA
     Dosage: 300 MG/M2, QD OVER 24 HOURS FOR 3 DAYS ON DAYS 1-3
     Route: 042
     Dates: start: 20141102
  6. PEGFILGRASTIM [Suspect]
     Active Substance: PEGFILGRASTIM
     Dosage: 6 MG, ON DAY 4
     Route: 058
     Dates: start: 20141102
  7. INOTUZUMAB [Suspect]
     Active Substance: INOTUZUMAB OZOGAMICIN
     Dosage: OVER 1 HOUR ON DAY 3
     Dates: start: 20141102

REACTIONS (2)
  - Sepsis [Recovered/Resolved]
  - Acute kidney injury [Recovered/Resolved]

NARRATIVE: CASE EVENT DATE: 20141102
